FAERS Safety Report 17299083 (Version 1)
Quarter: 2020Q1

REPORT INFORMATION
  Report Type: Spontaneous
  Country: US (occurrence: US)
  Receive Date: 20200122
  Receipt Date: 20200122
  Transmission Date: 20200409
  Serious: No
  Sender: FDA-Public Use
  Company Number: US-MYLANLABS-2020M1003926

PATIENT
  Age: 48 Year
  Sex: Male
  Weight: 71 kg

DRUGS (4)
  1. CLOZAPINE TABLETS, USP [Suspect]
     Active Substance: CLOZAPINE
     Indication: BIPOLAR DISORDER
     Dosage: 50 MILLIGRAM
     Route: 048
     Dates: start: 20191118
  2. CLOZAPINE TABLETS, USP [Suspect]
     Active Substance: CLOZAPINE
     Indication: PARANOIA
     Dosage: 100 MILLIGRAM, PM
     Route: 048
     Dates: start: 2019, end: 20191217
  3. LITHIUM CARBONATE EXTENDED-RELEASE TABLETS, USP [Suspect]
     Active Substance: LITHIUM CARBONATE
     Indication: PARANOIA
  4. LITHIUM CARBONATE EXTENDED-RELEASE TABLETS, USP [Suspect]
     Active Substance: LITHIUM CARBONATE
     Indication: BIPOLAR DISORDER
     Dosage: 2 DOSAGE FORM, PM
     Route: 048

REACTIONS (3)
  - Urinary incontinence [Unknown]
  - Product use in unapproved indication [Unknown]
  - Drooling [Not Recovered/Not Resolved]

NARRATIVE: CASE EVENT DATE: 20191118
